FAERS Safety Report 5584581-0 (Version None)
Quarter: 2007Q4

REPORT INFORMATION
  Report Type: 
  Country: None (occurrence: None)
  Receive Date: 20071130
  Receipt Date: 20070927
  Transmission Date: 20080405
  Serious: Yes (Other)
  Sender: FDA-Public Use
  Company Number: WAES 0709USA04674

PATIENT
  Age: 72 Year
  Sex: Female

DRUGS (9)
  1. FOSAMAX [Suspect]
     Indication: OSTEOPOROSIS
     Dosage: 70 MG/WKY/PO
     Route: 048
     Dates: start: 19950101
  2. AVALIDE [Concomitant]
  3. DETROL [Concomitant]
  4. LIPITOR [Concomitant]
  5. NAPROSYN [Concomitant]
  6. ESTRADIOL [Concomitant]
  7. HYDROCODONE BITARTRATE [Concomitant]
  8. LEVOTHYROXINE SODIUM [Concomitant]
  9. PREDNISONE [Concomitant]

REACTIONS (1)
  - OSTEONECROSIS [None]
